FAERS Safety Report 10199906 (Version 1)
Quarter: 2014Q2

REPORT INFORMATION
  Report Type: Spontaneous
  Country: FR (occurrence: FR)
  Receive Date: 20140527
  Receipt Date: 20140527
  Transmission Date: 20141212
  Serious: Yes (Other)
  Sender: FDA-Public Use
  Company Number: PHHY2014FR062118

PATIENT
  Age: 49 Year
  Sex: Female

DRUGS (4)
  1. AZATHIOPRINE [Suspect]
     Indication: PROPHYLAXIS AGAINST TRANSPLANT REJECTION
  2. TACROLIMUS [Suspect]
     Indication: PROPHYLAXIS AGAINST TRANSPLANT REJECTION
  3. RITUXIMAB [Suspect]
     Indication: HENOCH-SCHONLEIN PURPURA
     Dosage: 1000 MG, UNK
     Route: 042
  4. PREDNISONE [Concomitant]
     Indication: HENOCH-SCHONLEIN PURPURA
     Dosage: 1 MG/KG, UNK

REACTIONS (3)
  - Hypogammaglobulinaemia [Recovered/Resolved]
  - Gastrointestinal viral infection [Recovered/Resolved]
  - Diarrhoea [Recovered/Resolved]
